FAERS Safety Report 11627175 (Version 1)
Quarter: 2015Q4

REPORT INFORMATION
  Report Type: Report from Study
  Country: US (occurrence: US)
  Receive Date: 20151013
  Receipt Date: 20151013
  Transmission Date: 20160304
  Serious: No
  Sender: FDA-Public Use
  Company Number: US-AMGEN-USASL2015013045

PATIENT
  Age: 28 Year
  Sex: Female

DRUGS (19)
  1. ZITHROMAX [Concomitant]
     Active Substance: AZITHROMYCIN DIHYDRATE
     Indication: PYREXIA
     Dosage: UNK
  2. TYLENOL [Concomitant]
     Active Substance: ACETAMINOPHEN
     Dosage: UNK
  3. HERCEPTIN [Suspect]
     Active Substance: TRASTUZUMAB
     Dosage: IN 250 CC NORMAL SALINE (120 MG, 1 IN 1 WK)
     Route: 042
     Dates: start: 19990211
  4. PROCRIT [Concomitant]
     Active Substance: ERYTHROPOIETIN
     Dosage: 300 MUG, UNK
     Dates: start: 19981202
  5. HERCEPTIN [Suspect]
     Active Substance: TRASTUZUMAB
     Dosage: 120 MG, 1 IN 1 D
     Route: 042
     Dates: start: 19981111
  6. NEURONTIN [Concomitant]
     Active Substance: GABAPENTIN
     Indication: SEIZURE
     Dosage: UNK
  7. PARACETAMOL [Concomitant]
     Active Substance: ACETAMINOPHEN
     Indication: BREAST TENDERNESS
  8. FILGRASTIM [Suspect]
     Active Substance: FILGRASTIM
     Indication: PRODUCT USED FOR UNKNOWN INDICATION
     Dosage: UNK
     Route: 058
     Dates: start: 19981202
  9. HERCEPTIN [Suspect]
     Active Substance: TRASTUZUMAB
     Dosage: IN 250 CC NORMAL SALINE (120 MG, 1 IN 1 WK)
     Route: 042
     Dates: start: 19990127
  10. BENADRYL [Suspect]
     Active Substance: DIPHENHYDRAMINE HYDROCHLORIDE
     Indication: PRODUCT USED FOR UNKNOWN INDICATION
     Dosage: 25 MG, UNK
     Route: 065
     Dates: start: 19981104
  11. DEPAKOTE [Concomitant]
     Active Substance: DIVALPROEX SODIUM
     Indication: SEIZURE
     Dosage: UNK
  12. AREDIA [Suspect]
     Active Substance: PAMIDRONATE DISODIUM
     Indication: PRODUCT USED FOR UNKNOWN INDICATION
     Dosage: 90 MG, 1 IN 1 M
     Route: 042
     Dates: start: 19981005
  13. TAMOXIFEN [Suspect]
     Active Substance: TAMOXIFEN
     Indication: PRODUCT USED FOR UNKNOWN INDICATION
     Dosage: 10 MG, 1 IN 1 D
     Route: 048
  14. HERCEPTIN [Suspect]
     Active Substance: TRASTUZUMAB
     Indication: BREAST CANCER METASTATIC
     Dosage: LOADING DOSE-260 MG (4 MG/KG 1 WK
     Route: 042
     Dates: start: 19981029
  15. HERCEPTIN [Suspect]
     Active Substance: TRASTUZUMAB
     Dosage: IN 250 CC NORMAL SALINE (120 MG, 1 IN 1 WK)
     Route: 042
     Dates: start: 19990203
  16. HERCEPTIN [Suspect]
     Active Substance: TRASTUZUMAB
     Dosage: 240 MG, 1 IN 1 D
     Route: 042
     Dates: start: 19981104
  17. TYLENOL WITH CODEINE [Concomitant]
     Active Substance: ACETAMINOPHEN\CODEINE PHOSPHATE
     Dosage: 1000 MG, 1 IN 1 D
     Route: 048
     Dates: start: 19981104
  18. CLINDAMYCIN [Concomitant]
     Active Substance: CLINDAMYCIN\CLINDAMYCIN PHOSPHATE
     Indication: URINARY TRACT INFECTION
     Dosage: UNK
  19. PARACETAMOL [Concomitant]
     Active Substance: ACETAMINOPHEN
     Indication: PYREXIA
     Dosage: UNK

REACTIONS (19)
  - Pyrexia [Unknown]
  - Emotional distress [Unknown]
  - Breast mass [Unknown]
  - Upper respiratory tract infection [Unknown]
  - Breast tenderness [Unknown]
  - Pallor [Unknown]
  - Headache [Unknown]
  - Contusion [Unknown]
  - Skin mass [Unknown]
  - Blood calcium decreased [Unknown]
  - Lymphoedema [Unknown]
  - Sinus congestion [Unknown]
  - Disease progression [Unknown]
  - Drug dose omission [Unknown]
  - Somnolence [Unknown]
  - Dizziness [Unknown]
  - Upper-airway cough syndrome [Unknown]
  - Hot flush [Unknown]
  - Anxiety [Unknown]
